FAERS Safety Report 14485378 (Version 1)
Quarter: 2018Q1

REPORT INFORMATION
  Report Type: Spontaneous
  Country: US (occurrence: US)
  Receive Date: 20180205
  Receipt Date: 20180205
  Transmission Date: 20180509
  Serious: No
  Sender: FDA-Public Use
  Company Number: US-PFIZER INC-2018048033

PATIENT
  Age: 20 Year
  Sex: Female

DRUGS (3)
  1. FINASTERIDE. [Suspect]
     Active Substance: FINASTERIDE
     Indication: RHEUMATOID ARTHRITIS
     Dosage: UNK
     Dates: start: 20150225
  2. ROGAINE [Suspect]
     Active Substance: MINOXIDIL
     Indication: RHEUMATOID ARTHRITIS
     Dosage: UNK
     Dates: start: 201502
  3. SPIRONOLACTONE. [Suspect]
     Active Substance: SPIRONOLACTONE
     Indication: RHEUMATOID ARTHRITIS
     Dosage: 200 MG, UNK
     Dates: start: 20150225

REACTIONS (3)
  - Tuberculin test positive [Unknown]
  - Product use in unapproved indication [Unknown]
  - Treatment failure [Unknown]

NARRATIVE: CASE EVENT DATE: 201712
